FAERS Safety Report 16680054 (Version 7)
Quarter: 2020Q3

REPORT INFORMATION
  Report Type: Report from Study
  Country: US (occurrence: US)
  Receive Date: 20190807
  Receipt Date: 20200731
  Transmission Date: 20201102
  Serious: Yes (Hospitalization, Other)
  Sender: FDA-Public Use
  Company Number: US-ACTELION-A-NJ2019-191264

PATIENT
  Age: 81 Year
  Sex: Female
  Weight: 57.6 kg

DRUGS (7)
  1. UPTRAVI [Suspect]
     Active Substance: SELEXIPAG
     Dosage: 800 MCG QAM, 1000 MCG QPM
     Route: 048
  2. WARFARIN [Suspect]
     Active Substance: WARFARIN
     Indication: PRODUCT USED FOR UNKNOWN INDICATION
     Dosage: 2.5 MG, MON/FRI, 3.75 MG ON REST OF WEEK
     Route: 048
     Dates: start: 201207
  3. FUROSEMIDE. [Concomitant]
     Active Substance: FUROSEMIDE
     Dosage: 100 MG, BID
  4. UPTRAVI [Suspect]
     Active Substance: SELEXIPAG
     Indication: PULMONARY HYPERTENSION
     Dosage: 1000 MCG, BID
     Route: 048
  5. TIKOSYN [Suspect]
     Active Substance: DOFETILIDE
     Indication: PRODUCT USED FOR UNKNOWN INDICATION
     Route: 065
  6. OPSUMIT [Suspect]
     Active Substance: MACITENTAN
     Indication: PULMONARY HYPERTENSION
     Dosage: 10 MG, QD
     Route: 048
     Dates: start: 20190509
  7. ADCIRCA [Concomitant]
     Active Substance: TADALAFIL

REACTIONS (26)
  - Drug hypersensitivity [Unknown]
  - Blood potassium decreased [Recovered/Resolved]
  - Insomnia [Unknown]
  - Back pain [Unknown]
  - Haemorrhoidal haemorrhage [Recovered/Resolved]
  - Rectal haemorrhage [Not Recovered/Not Resolved]
  - International normalised ratio increased [Unknown]
  - Fluid retention [Recovered/Resolved]
  - Muscle spasms [Unknown]
  - Musculoskeletal disorder [Unknown]
  - Arthralgia [Unknown]
  - Haemoglobin decreased [Recovering/Resolving]
  - Transfusion [Not Recovered/Not Resolved]
  - Weight fluctuation [Recovered/Resolved]
  - Dysphagia [Unknown]
  - Cardiac failure congestive [Unknown]
  - Asthenia [Unknown]
  - Diarrhoea [Recovered/Resolved]
  - Anaemia [Recovering/Resolving]
  - Weight increased [Recovered/Resolved]
  - Unevaluable event [Unknown]
  - Packed red blood cell transfusion [Recovered/Resolved]
  - Burning sensation [Unknown]
  - Pain in extremity [Unknown]
  - Blood creatinine increased [Unknown]
  - Restless legs syndrome [Unknown]

NARRATIVE: CASE EVENT DATE: 2019
